FAERS Safety Report 6502955-8 (Version None)
Quarter: 2009Q4

REPORT INFORMATION
  Report Type: 
  Country: None (occurrence: None)
  Receive Date: 20091217
  Receipt Date: 20091207
  Transmission Date: 20100525
  Serious: Yes (Other)
  Sender: FDA-Public Use
  Company Number: PHHY2009GB54270

PATIENT
  Sex: Male

DRUGS (2)
  1. GLEEVEC [Suspect]
     Indication: CHRONIC MYELOID LEUKAEMIA
     Dosage: UNK
     Dates: start: 20080301
  2. GLEEVEC [Suspect]
     Dosage: 400 MG, UNK

REACTIONS (2)
  - CARCINOID SYNDROME [None]
  - LEUKAEMIA RECURRENT [None]
